FAERS Safety Report 10073958 (Version 2)
Quarter: 2014Q4

REPORT INFORMATION
  Report Type: Spontaneous
  Country: US (occurrence: US)
  Receive Date: 20140411
  Receipt Date: 20141215
  Transmission Date: 20150528
  Serious: Yes (Hospitalization)
  Sender: FDA-Public Use
  Company Number: US-GILEAD-2014-0099389

PATIENT
  Age: 73 Year
  Sex: Male

DRUGS (15)
  1. LYRICA [Concomitant]
     Active Substance: PREGABALIN
  2. GLIPIZIDE. [Concomitant]
     Active Substance: GLIPIZIDE
  3. ASPIRIN LOW DOSE [Concomitant]
     Active Substance: ASPIRIN
  4. POTASSIUM [Concomitant]
     Active Substance: POTASSIUM
  5. LASIX [Concomitant]
     Active Substance: FUROSEMIDE
  6. LISINOPRIL. [Concomitant]
     Active Substance: LISINOPRIL
  7. ADCIRCA [Concomitant]
     Active Substance: TADALAFIL
  8. CARVEDILOL. [Concomitant]
     Active Substance: CARVEDILOL
  9. LETAIRIS [Suspect]
     Active Substance: AMBRISENTAN
     Indication: PULMONARY ARTERIAL HYPERTENSION
     Dosage: 5 MG, QD
     Route: 048
     Dates: start: 20140306
  10. ALDACTONE [Concomitant]
     Active Substance: SPIRONOLACTONE
  11. METOLAZONE. [Concomitant]
     Active Substance: METOLAZONE
  12. PLAVIX [Concomitant]
     Active Substance: CLOPIDOGREL BISULFATE
  13. ZOCOR [Concomitant]
     Active Substance: SIMVASTATIN
  14. PRILOSEC [Concomitant]
     Active Substance: OMEPRAZOLE MAGNESIUM
  15. PRIMIDONE. [Concomitant]
     Active Substance: PRIMIDONE

REACTIONS (1)
  - Aortic aneurysm [Not Recovered/Not Resolved]

NARRATIVE: CASE EVENT DATE: 20140402
